FAERS Safety Report 4726077-1 (Version None)
Quarter: 2005Q3

REPORT INFORMATION
  Report Type: 
  Country: None (occurrence: None)
  Receive Date: 20050725
  Receipt Date: 20050712
  Transmission Date: 20060218
  Serious: Yes (Death)
  Sender: FDA-Public Use
  Company Number: 2004090802

PATIENT
  Age: 45 Year
  Sex: Male

DRUGS (6)
  1. ZELDOX (CAPSULES) (ZIPRASIDONE) [Suspect]
     Indication: SCHIZOPHRENIA
     Dosage: 160 MG (80 MG, 2 IN 1 D), ORAL
     Route: 048
     Dates: start: 20040830
  2. ZOPICLONE (ZOPICLONE) [Suspect]
     Indication: ILL-DEFINED DISORDER
     Dosage: ORAL
     Route: 048
  3. OXAZEPAM [Suspect]
     Indication: ILL-DEFINED DISORDER
     Dosage: ORAL
     Route: 048
  4. ALCOHOL (ETHANOL) [Suspect]
     Indication: ILL-DEFINED DISORDER
     Dosage: ORAL
     Route: 048
  5. ZYPREXA [Concomitant]
  6. MAREVAN FORTE (WARFARIN SODIUM) [Concomitant]

REACTIONS (6)
  - ACCIDENT [None]
  - ELECTROCARDIOGRAM QT PROLONGED [None]
  - FALL [None]
  - HALLUCINATION [None]
  - HEAD INJURY [None]
  - SUDDEN DEATH [None]
